FAERS Safety Report 7339634-3 (Version None)
Quarter: 2011Q1

REPORT INFORMATION
  Report Type: 
  Country: None (occurrence: None)
  Receive Date: 20110308
  Receipt Date: 20110223
  Transmission Date: 20110831
  Serious: Yes (Hospitalization, Other)
  Sender: FDA-Public Use
  Company Number: CA-GENENTECH-314635

PATIENT
  Sex: Female
  Weight: 126 kg

DRUGS (1)
  1. XOLAIR [Suspect]
     Indication: ASTHMA
     Dosage: 300 MG, 1/MONTH
     Route: 058
     Dates: start: 20051102

REACTIONS (3)
  - MYOCARDIAL INFARCTION [None]
  - ASTHMA [None]
  - CHEST PAIN [None]
